FAERS Safety Report 21380551 (Version 8)
Quarter: 2024Q3

REPORT INFORMATION
  Report Type: Spontaneous
  Country: US (occurrence: US)
  Receive Date: 20220927
  Receipt Date: 20240718
  Transmission Date: 20241016
  Serious: No
  Sender: PFIZER
  Company Number: US-PFIZER INC-PV202200056750

PATIENT
  Age: 43 Year
  Sex: Female

DRUGS (1)
  1. DEPO-PROVERA [Suspect]
     Active Substance: MEDROXYPROGESTERONE ACETATE
     Indication: Endometriosis
     Dosage: UNK

REACTIONS (6)
  - Drug dose omission by device [Unknown]
  - Poor quality device used [Unknown]
  - Device defective [Unknown]
  - Device occlusion [Unknown]
  - Device leakage [Unknown]
  - Syringe issue [Unknown]
